FAERS Safety Report 8376432-6 (Version None)
Quarter: 2012Q2

REPORT INFORMATION
  Report Type: 
  Country: None (occurrence: None)
  Receive Date: 20120522
  Receipt Date: 20120516
  Transmission Date: 20120825
  Serious: Yes (Hospitalization)
  Sender: FDA-Public Use
  Company Number: PHHY2012CH037915

PATIENT
  Age: 28 Year
  Sex: Female

DRUGS (6)
  1. PREDNISONE [Concomitant]
     Dosage: 7.5 MG, QD
     Dates: start: 20120430
  2. OLMESARTAN MEDOXOMIL [Concomitant]
     Dosage: 20 MG, QD
  3. CALCIMAGOND3 [Concomitant]
  4. PREDNISONE [Concomitant]
     Dosage: 10 MG, QD
     Dates: start: 20120412, end: 20120429
  5. MYFORTIC [Suspect]
     Indication: SYSTEMIC LUPUS ERYTHEMATOSUS
     Dosage: 720 MG, BID
     Dates: start: 20120201
  6. CITALOPRAM HYDROBROMIDE [Concomitant]
     Dosage: 20 MG, QD

REACTIONS (5)
  - AGRANULOCYTOSIS [None]
  - NEUTROPENIA [None]
  - HAEMATURIA [None]
  - ESCHERICHIA URINARY TRACT INFECTION [None]
  - PYREXIA [None]
